FAERS Safety Report 13512774 (Version 1)
Quarter: 2017Q2

REPORT INFORMATION
  Report Type: Spontaneous
  Country: US (occurrence: US)
  Receive Date: 20170504
  Receipt Date: 20170504
  Transmission Date: 20170830
  Serious: No
  Sender: FDA-Public Use
  Company Number: US-PFIZER INC-2017194403

PATIENT
  Sex: Male

DRUGS (1)
  1. EUCRISA [Suspect]
     Active Substance: CRISABOROLE
     Indication: DERMATITIS ATOPIC
     Dosage: 2 %, 2X/DAY, ONE THIN LAYER ON THE FACE AND AROUND EYELIDS

REACTIONS (5)
  - Burning sensation [Unknown]
  - Rash [Unknown]
  - Pain [Unknown]
  - Application site erythema [Unknown]
  - Application site pruritus [Unknown]
